FAERS Safety Report 25214081 (Version 2)
Quarter: 2025Q2

REPORT INFORMATION
  Report Type: Spontaneous
  Country: US (occurrence: US)
  Receive Date: 20250418
  Receipt Date: 20250421
  Transmission Date: 20250717
  Serious: No
  Sender: PFIZER
  Company Number: US-PFIZER INC-PV202500043586

PATIENT
  Age: 61 Year
  Sex: Female

DRUGS (3)
  1. TUKYSA [Interacting]
     Active Substance: TUCATINIB
     Dosage: 300 MG, 2X/DAY
  2. TUKYSA [Interacting]
     Active Substance: TUCATINIB
  3. MORPHINE SULFATE [Interacting]
     Active Substance: MORPHINE SULFATE

REACTIONS (2)
  - Drug interaction [Unknown]
  - Intentional product misuse [Unknown]
